FAERS Safety Report 4946616-5 (Version None)
Quarter: 2006Q1

REPORT INFORMATION
  Report Type: 
  Country: None (occurrence: None)
  Receive Date: 20060317
  Receipt Date: 20060125
  Transmission Date: 20060701
  Serious: Yes (Other)
  Sender: FDA-Public Use
  Company Number: DE-GLAXOSMITHKLINE-D0048540A

PATIENT
  Age: 81 Year
  Sex: Male

DRUGS (11)
  1. AVANDIA [Suspect]
     Dosage: 4MG PER DAY
     Route: 048
     Dates: start: 20010901
  2. ASPIRIN [Concomitant]
     Dosage: 100MG UNKNOWN
     Route: 048
  3. BELOC-ZOK [Concomitant]
     Dosage: 95MG UNKNOWN
     Route: 048
  4. BLOPRESS [Concomitant]
     Dosage: 8MG UNKNOWN
     Route: 048
  5. GLUCOBAY [Concomitant]
     Dosage: 50MG UNKNOWN
     Route: 048
  6. GLUCOPHAGE [Concomitant]
     Dosage: 850MG UNKNOWN
     Route: 048
  7. HCT HEXAL [Concomitant]
     Dosage: 25MG UNKNOWN
     Route: 048
  8. OMEPRAZOLE [Concomitant]
     Dosage: 20MG UNKNOWN
     Route: 048
  9. PLAVIX [Concomitant]
     Dosage: 75MG UNKNOWN
     Route: 048
  10. SIMVASTATIN [Concomitant]
     Dosage: 5MG UNKNOWN
     Route: 048
  11. UROXATRAL [Concomitant]
     Dosage: 10MG UNKNOWN
     Route: 048

REACTIONS (2)
  - OEDEMA PERIPHERAL [None]
  - VISUAL ACUITY REDUCED [None]
